FAERS Safety Report 12771952 (Version 1)
Quarter: 2016Q3

REPORT INFORMATION
  Report Type: Spontaneous
  Country: JP (occurrence: JP)
  Receive Date: 20160922
  Receipt Date: 20160922
  Transmission Date: 20161109
  Serious: Yes (Disabling)
  Sender: FDA-Public Use
  Company Number: JP-ALLERGAN-1669424US

PATIENT
  Age: 84 Year
  Sex: Female

DRUGS (4)
  1. ALPHAGAN P [Suspect]
     Active Substance: BRIMONIDINE TARTRATE
     Dosage: 2 GTT, BID
     Dates: start: 20160120, end: 20160120
  2. RIZABEN [Concomitant]
     Active Substance: TRANILAST
     Indication: CONJUNCTIVITIS ALLERGIC
     Dosage: UNK
     Route: 047
     Dates: start: 20120615
  3. CRAVIT [Concomitant]
     Active Substance: LEVOFLOXACIN
     Indication: INFECTION PROPHYLAXIS
     Dosage: UNK
     Route: 047
     Dates: start: 20110722
  4. ALPHAGAN P [Suspect]
     Active Substance: BRIMONIDINE TARTRATE
     Indication: GLAUCOMA
     Dosage: 2 GTT, BID
     Route: 047
     Dates: start: 20151104, end: 20151109

REACTIONS (3)
  - Visual acuity reduced [Recovered/Resolved]
  - Corneal disorder [Recovered/Resolved]
  - Corneal oedema [Recovered/Resolved]

NARRATIVE: CASE EVENT DATE: 20151105
